FAERS Safety Report 8731390 (Version 4)
Quarter: 2018Q4

REPORT INFORMATION
  Report Type: Spontaneous
  Country: FR (occurrence: FR)
  Receive Date: 20120820
  Receipt Date: 20181119
  Transmission Date: 20190205
  Serious: Yes (Hospitalization)
  Sender: FDA-Public Use
  Company Number: FR-PFIZER INC-2012197997

PATIENT
  Age: 73 Year
  Sex: Male
  Weight: 64 kg

DRUGS (4)
  1. AMLOR [Suspect]
     Active Substance: AMLODIPINE BESYLATE
     Dosage: 5 MG, 1X/DAY
     Route: 048
     Dates: end: 20120730
  2. LYSANXIA [Concomitant]
     Active Substance: PRAZEPAM
     Dosage: UNK
     Route: 048
  3. INEXIUM [Concomitant]
     Active Substance: ESOMEPRAZOLE
     Dosage: UNK
     Route: 048
  4. TERALITHE [Suspect]
     Active Substance: LITHIUM CARBONATE
     Indication: BIPOLAR DISORDER
     Dosage: 800 MG, 1X/DAY
     Route: 048
     Dates: end: 20120730

REACTIONS (3)
  - Antipsychotic drug level increased [Recovered/Resolved]
  - Dysphagia [Recovered/Resolved]
  - Pneumonia aspiration [Recovered/Resolved]

NARRATIVE: CASE EVENT DATE: 201205
